FAERS Safety Report 20683699 (Version 1)
Quarter: 2022Q2

REPORT INFORMATION
  Report Type: Spontaneous
  Country: GB (occurrence: GB)
  Receive Date: 20220407
  Receipt Date: 20220407
  Transmission Date: 20220721
  Serious: Yes (Disabling)
  Sender: FDA-Public Use
  Company Number: None

PATIENT
  Age: 31 Year
  Sex: Female
  Weight: 62 kg

DRUGS (3)
  1. DOXYCYCLINE [Suspect]
     Active Substance: DOXYCYCLINE
     Indication: Product used for unknown indication
     Dosage: 200 MILLIGRAM, QD(TAKE TWO NOW THEN ONE DAILY)
     Route: 048
     Dates: start: 20220330, end: 20220330
  2. DOXYCYCLINE [Suspect]
     Active Substance: DOXYCYCLINE
     Dosage: 100 MILLIGRAM, QD(TAKE TWO NOW THEN ONE DAILY)
     Route: 048
     Dates: start: 20220331
  3. GEDAREL [Concomitant]
     Indication: Ill-defined disorder
     Dosage: UNK, QD TAKE ONE A DAY FOR 21 DAYS THEN HAVE A 7 DAY BR
     Dates: start: 20210301

REACTIONS (2)
  - Vomiting [Recovering/Resolving]
  - Malaise [Recovering/Resolving]
